FAERS Safety Report 8386743-6 (Version None)
Quarter: 2012Q2

REPORT INFORMATION
  Report Type: 
  Country: None (occurrence: None)
  Receive Date: 20120525
  Receipt Date: 20120517
  Transmission Date: 20120825
  Serious: Yes (Hospitalization)
  Sender: FDA-Public Use
  Company Number: KR-SANOFI-AVENTIS-2012SA009077

PATIENT
  Age: 55 Year
  Sex: Female
  Weight: 54 kg

DRUGS (3)
  1. LANTUS [Suspect]
     Indication: DIABETES MELLITUS
     Dosage: DOSE:30 UNIT(S)
     Route: 058
     Dates: start: 20111201
  2. LANTUS [Suspect]
     Dosage: DOSE:32 UNIT(S)
     Route: 058
  3. LANTUS [Suspect]
     Dosage: DOSE:40 UNIT(S)
     Route: 058
     Dates: start: 20120426

REACTIONS (6)
  - GENERALISED OEDEMA [None]
  - DRUG INEFFECTIVE [None]
  - BLINDNESS [None]
  - DIABETIC RETINOPATHY [None]
  - VISUAL IMPAIRMENT [None]
  - HYPERGLYCAEMIA [None]
